FAERS Safety Report 5848358-0 (Version None)
Quarter: 2008Q3

REPORT INFORMATION
  Report Type: 
  Country: None (occurrence: None)
  Receive Date: 20080815
  Receipt Date: 20080815
  Transmission Date: 20090109
  Serious: Yes (Other)
  Sender: FDA-Public Use
  Company Number: None

PATIENT
  Age: 60 Year
  Sex: Female
  Weight: 70.3075 kg

DRUGS (1)
  1. CLIMARA PRO [Suspect]
     Indication: MENOPAUSE
     Dosage: 1 WEEKLY WEEKLY TRANSDERMAL
     Route: 062

REACTIONS (3)
  - DEVICE FAILURE [None]
  - RASH [None]
  - SKIN INFECTION [None]
